FAERS Safety Report 23410325 (Version 6)
Quarter: 2024Q2

REPORT INFORMATION
  Report Type: Report from Study
  Country: US (occurrence: US)
  Receive Date: 20240117
  Receipt Date: 20240605
  Transmission Date: 20240716
  Serious: Yes (Other)
  Sender: FDA-Public Use
  Company Number: US-002147023-NVSC2023US259403

PATIENT
  Age: 48 Year
  Sex: Female

DRUGS (7)
  1. KESIMPTA [Suspect]
     Active Substance: OFATUMUMAB
     Indication: Multiple sclerosis
     Dosage: 20 MG, QMO
     Route: 030
     Dates: start: 20231001
  2. KESIMPTA [Suspect]
     Active Substance: OFATUMUMAB
     Dosage: UNK
     Route: 065
     Dates: start: 20231128
  3. KESIMPTA [Suspect]
     Active Substance: OFATUMUMAB
     Dosage: UNK
     Route: 065
     Dates: start: 20231205
  4. KESIMPTA [Suspect]
     Active Substance: OFATUMUMAB
     Dosage: 1 DOSAGE FORM (INJECT 20MG (1 INJECTOR) SUBCUTANEOUSLY AT WEEK 0, WEEK 1 AND WEEK 2 AS DIRECTED)
     Route: 058
  5. KESIMPTA [Suspect]
     Active Substance: OFATUMUMAB
     Dosage: 1 DOSAGE FORM
     Route: 058
  6. OXYBUTYNIN CHLORIDE [Concomitant]
     Active Substance: OXYBUTYNIN CHLORIDE
     Indication: Product used for unknown indication
     Dosage: UNK
     Route: 065
  7. PROZAC [Concomitant]
     Active Substance: FLUOXETINE HYDROCHLORIDE
     Indication: Product used for unknown indication
     Dosage: UNK
     Route: 065

REACTIONS (15)
  - Brain fog [Unknown]
  - Anal incontinence [Unknown]
  - Urinary incontinence [Unknown]
  - Pain [Unknown]
  - Fatigue [Unknown]
  - Multiple sclerosis [Unknown]
  - Tremor [Unknown]
  - Gait disturbance [Not Recovered/Not Resolved]
  - Dysphagia [Unknown]
  - Product container issue [Unknown]
  - Influenza like illness [Unknown]
  - Nausea [Unknown]
  - Diarrhoea [Unknown]
  - Product storage error [Unknown]
  - Fall [Unknown]

NARRATIVE: CASE EVENT DATE: 20240101
